FAERS Safety Report 24419516 (Version 2)
Quarter: 2024Q4

REPORT INFORMATION
  Report Type: Report from Study
  Country: US (occurrence: US)
  Receive Date: 20241010
  Receipt Date: 20241018
  Transmission Date: 20250114
  Serious: No
  Sender: ROCHE
  Company Number: US-ROCHE-3482499

PATIENT
  Age: 44 Year
  Sex: Female

DRUGS (24)
  1. CATHFLO ACTIVASE [Suspect]
     Active Substance: ALTEPLASE
     Indication: Hypomagnesaemia
     Dosage: EXCEED ABOVE 4 MG DATE OF SERVICE: 26/DEC/2023, 27/DEC/2023, 28/DEC/2023, 29/DEC/2023, 30/DEC/2023,
     Route: 042
  2. CATHFLO ACTIVASE [Suspect]
     Active Substance: ALTEPLASE
     Indication: Hypokalaemia
     Dosage: DATE OF SERVICE: 08/JAN/2024, 09/JAN/2024,10/JAN/2024,11/JAN/2024, 12/JAN/2024,13/JAN/2024, 05/FEB/2
     Route: 042
  3. CATHFLO ACTIVASE [Suspect]
     Active Substance: ALTEPLASE
     Indication: Renal disorder
     Dosage: DATE OF SERVICE: 06/MAY/2024, 07/MAY/2024, 08/MAY/2024, 09/MAY/2024, 10/MAY/2024, 11/MAY/2024
     Route: 065
  4. CATHFLO ACTIVASE [Suspect]
     Active Substance: ALTEPLASE
     Indication: Renal impairment
  5. AMILORIDE [Concomitant]
     Active Substance: AMILORIDE
  6. LIDOCAINE VISCOUS [Concomitant]
     Active Substance: LIDOCAINE HYDROCHLORIDE
     Route: 048
  7. POTASSIUM CHLORIDE [Concomitant]
     Active Substance: POTASSIUM CHLORIDE
  8. POTASSIUM CHLORIDE [Concomitant]
     Active Substance: POTASSIUM CHLORIDE
  9. PROCHLORPERAZINE EDISYLATE [Concomitant]
     Active Substance: PROCHLORPERAZINE EDISYLATE
  10. PROMETHAZINE HYDROCHLORIDE [Concomitant]
     Active Substance: PROMETHAZINE HYDROCHLORIDE
  11. SPIRONOLACTONE [Concomitant]
     Active Substance: SPIRONOLACTONE
  12. AMBIEN [Concomitant]
     Active Substance: ZOLPIDEM TARTRATE
  13. CYCLOBENZAPRINE [Concomitant]
     Active Substance: CYCLOBENZAPRINE
  14. ERGOCALCIFEROL [Concomitant]
     Active Substance: ERGOCALCIFEROL
  15. FENTANYL [Concomitant]
     Active Substance: FENTANYL
  16. LEVOTHYROXINE [Concomitant]
     Active Substance: LEVOTHYROXINE
  17. MAGNESIUM OXIDE [Concomitant]
     Active Substance: MAGNESIUM OXIDE
  18. ONDANSETRON HYDROCHLORIDE [Concomitant]
     Active Substance: ONDANSETRON HYDROCHLORIDE
  19. PRENATAL PLUS IRON [Concomitant]
     Active Substance: .ALPHA.-TOCOPHEROL ACETATE, DL-\.BETA.-CAROTENE\ASCORBIC ACID\CALCIUM CARBONATE\CHOLECALCIFEROL\CUPR
  20. QULIPTA [Concomitant]
     Active Substance: ATOGEPANT
  21. TOPAMAX [Concomitant]
     Active Substance: TOPIRAMATE
  22. VITAMIN A [Concomitant]
     Active Substance: VITAMIN A
  23. VITAMIN B COMPLEX NOS [Concomitant]
     Active Substance: CYANOCOBALAMIN\PYRIDOXINE HYDROCHLORIDE\RIBOFLAVIN\SODIUM PANTOTHENATE\THIAMINE HYDROCHLORIDE\VITAMI
  24. XARELTO [Concomitant]
     Active Substance: RIVAROXABAN

REACTIONS (2)
  - Off label use [Unknown]
  - No adverse event [Unknown]
